FAERS Safety Report 6278935-7 (Version None)
Quarter: 2009Q3

REPORT INFORMATION
  Report Type: 
  Country: None (occurrence: None)
  Receive Date: 20090723
  Receipt Date: 20090714
  Transmission Date: 20100115
  Serious: Yes (Other)
  Sender: FDA-Public Use
  Company Number: GB-JNJFOC-20081105620

PATIENT
  Age: 31 Year
  Sex: Female
  Weight: 53 kg

DRUGS (3)
  1. CILEST [Suspect]
     Indication: CONTRACEPTION
     Route: 048
  2. ZOVIRAX [Interacting]
     Route: 065
  3. ZOVIRAX [Interacting]
     Indication: ORAL HERPES
     Route: 065

REACTIONS (3)
  - BACTERIAL INFECTION [None]
  - DRUG INTERACTION [None]
  - DYSFUNCTIONAL UTERINE BLEEDING [None]
